FAERS Safety Report 12524259 (Version 1)
Quarter: 2016Q3

REPORT INFORMATION
  Report Type: Spontaneous
  Country: US (occurrence: US)
  Receive Date: 20160704
  Receipt Date: 20160704
  Transmission Date: 20161109
  Serious: Yes (Life-Threatening, Other)
  Sender: FDA-Public Use
  Company Number: US-AUROBINDO-AUR-APL-2016-08461

PATIENT
  Age: 71 Year
  Sex: Female

DRUGS (2)
  1. TRIMETHOPRIM+SULFAMETHOXAZOLE [Suspect]
     Active Substance: SULFAMETHOXAZOLE\TRIMETHOPRIM
     Indication: KERATOACANTHOMA
     Dosage: UNK, 3 COURSE LASTING APPROXIMATELY 10 DAYS
     Route: 065
  2. DOXYCYCLINE. [Suspect]
     Active Substance: DOXYCYCLINE
     Indication: KERATOACANTHOMA
     Dosage: UNK, 1 COURSE LASTING APPROXIMATELY 10 DAYS
     Route: 065

REACTIONS (1)
  - Drug ineffective [Unknown]
